FAERS Safety Report 24357293 (Version 1)
Quarter: 2024Q3

REPORT INFORMATION
  Report Type: Report from Study
  Country: US (occurrence: US)
  Receive Date: 20240924
  Receipt Date: 20240924
  Transmission Date: 20241016
  Serious: Yes (Death)
  Sender: DAIICHI
  Company Number: US-DSJP-DSU-2024-130700

PATIENT
  Age: 52 Year
  Sex: Female

DRUGS (2)
  1. ENHERTU [Suspect]
     Active Substance: FAM-TRASTUZUMAB DERUXTECAN-NXKI
     Indication: Product used for unknown indication
     Dosage: 350 MG, ONCE EVERY 3 WK
     Route: 042
     Dates: start: 20240409, end: 20240701
  2. ENHERTU [Suspect]
     Active Substance: FAM-TRASTUZUMAB DERUXTECAN-NXKI
     Dosage: 200 MG, ONCE EVERY 3 WK
     Route: 042
     Dates: start: 20240702, end: 20240919

REACTIONS (2)
  - Death [Fatal]
  - Therapy change [Not Recovered/Not Resolved]

NARRATIVE: CASE EVENT DATE: 20240702
